FAERS Safety Report 4326951-4 (Version None)
Quarter: 2004Q1

REPORT INFORMATION
  Report Type: 
  Country: None (occurrence: None)
  Receive Date: 20040319
  Receipt Date: 20031215
  Transmission Date: 20041129
  Serious: No
  Sender: FDA-Public Use
  Company Number: US-JNJFOC-20031203816

PATIENT
  Age: 20 Year
  Sex: Female
  Weight: 59.4212 kg

DRUGS (1)
  1. ORTHO EVRA [Suspect]
     Indication: CONTRACEPTION
     Dosage: 1 DOSE(S), 3 IN 4 WEEK, TRANSDERMAL
     Route: 062
     Dates: end: 20031119

REACTIONS (5)
  - ABDOMINAL PAIN [None]
  - DYSMENORRHOEA [None]
  - NAUSEA [None]
  - OLIGOMENORRHOEA [None]
  - VOMITING [None]
